FAERS Safety Report 8062079-8 (Version None)
Quarter: 2012Q1

REPORT INFORMATION
  Report Type: 
  Country: None (occurrence: None)
  Receive Date: 20120123
  Receipt Date: 20120116
  Transmission Date: 20120608
  Serious: Yes (Death, Hospitalization)
  Sender: FDA-Public Use
  Company Number: US-ROXANE LABORATORIES, INC.-2012-EU-00319GD

PATIENT
  Age: 84 Year
  Sex: Female

DRUGS (1)
  1. MORPHINE [Suspect]
     Route: 048

REACTIONS (6)
  - PNEUMONIA ASPIRATION [None]
  - VICTIM OF ABUSE [None]
  - RESPIRATORY DISORDER [None]
  - HOMICIDE [None]
  - MENTAL STATUS CHANGES [None]
  - TOXICITY TO VARIOUS AGENTS [None]
